FAERS Safety Report 13153865 (Version 1)
Quarter: 2017Q1

REPORT INFORMATION
  Report Type: Spontaneous
  Country: IT (occurrence: IT)
  Receive Date: 20170126
  Receipt Date: 20170126
  Transmission Date: 20170428
  Serious: Yes (Hospitalization)
  Sender: FDA-Public Use
  Company Number: IT-BAYER-2017-015856

PATIENT
  Age: 55 Year
  Sex: Male

DRUGS (2)
  1. INEGY [Concomitant]
     Active Substance: EZETIMIBE\SIMVASTATIN
     Dosage: UNK
     Route: 048
  2. ASPIRINA 500 MG [Suspect]
     Active Substance: ASPIRIN
     Indication: INFLUENZA
     Dosage: 1 DF, QD
     Route: 048
     Dates: start: 20161016, end: 20161019

REACTIONS (2)
  - Syncope [Unknown]
  - Gastrointestinal haemorrhage [Unknown]

NARRATIVE: CASE EVENT DATE: 20161019
